FAERS Safety Report 21022501 (Version 1)
Quarter: 2022Q2

REPORT INFORMATION
  Report Type: Spontaneous
  Country: CA (occurrence: CA)
  Receive Date: 20220629
  Receipt Date: 20220629
  Transmission Date: 20220720
  Serious: Yes (Other)
  Sender: FDA-Public Use
  Company Number: CA-PFIZER INC-202200886464

PATIENT
  Sex: Female

DRUGS (6)
  1. METHOTREXATE SODIUM [Suspect]
     Active Substance: METHOTREXATE SODIUM
     Dosage: DISCONTINUED
     Route: 065
  2. GABAPENTIN [Concomitant]
     Active Substance: GABAPENTIN
  3. ALEVE [Concomitant]
     Active Substance: NAPROXEN SODIUM
  4. FLEXOR [CHONDROITIN SULFATE;COLECALCIFEROL;COLLAGEN;GLUCOSAMINE SULFAT [Concomitant]
  5. LIOTHYRONINE SODIUM [Concomitant]
     Active Substance: LIOTHYRONINE SODIUM
  6. TORADOL [Concomitant]
     Active Substance: KETOROLAC TROMETHAMINE

REACTIONS (1)
  - Ulcer [Unknown]

NARRATIVE: CASE EVENT DATE: 20220101
